FAERS Safety Report 7175997-X (Version None)
Quarter: 2010Q4

REPORT INFORMATION
  Report Type: 
  Country: None (occurrence: None)
  Receive Date: 20101207
  Receipt Date: 20101123
  Transmission Date: 20110411
  Serious: Yes (Other)
  Sender: FDA-Public Use
  Company Number: 1000017535

PATIENT
  Sex: Female

DRUGS (2)
  1. MEMANTINE HCL [Suspect]
  2. RAMIPRIL [Concomitant]

REACTIONS (1)
  - RENAL IMPAIRMENT [None]
